FAERS Safety Report 18168876 (Version 2)
Quarter: 2021Q1

REPORT INFORMATION
  Report Type: Spontaneous
  Country: US (occurrence: US)
  Receive Date: 20200818
  Receipt Date: 20210108
  Transmission Date: 20210419
  Serious: Yes (Death, Other)
  Sender: FDA-Public Use
  Company Number: US-GILEAD-2020-0490534

PATIENT
  Sex: Male
  Weight: 34.01 kg

DRUGS (33)
  1. TRUVADA [Suspect]
     Active Substance: EMTRICITABINE\TENOFOVIR DISOPROXIL FUMARATE
     Indication: HIV INFECTION
     Dosage: UNK
     Route: 048
     Dates: start: 2004
  2. TRUVADA [Suspect]
     Active Substance: EMTRICITABINE\TENOFOVIR DISOPROXIL FUMARATE
     Dosage: UNK
     Route: 065
     Dates: start: 201704, end: 201705
  3. FLUCONAZOLE. [Concomitant]
     Active Substance: FLUCONAZOLE
  4. PENICILLIN [PENICILLIN NOS] [Concomitant]
     Active Substance: PENICILLIN
  5. TOPIRAMATE. [Concomitant]
     Active Substance: TOPIRAMATE
  6. EPZICOM [Concomitant]
     Active Substance: ABACAVIR SULFATE\LAMIVUDINE
  7. TRIAMCINOLONE [Concomitant]
     Active Substance: TRIAMCINOLONE
  8. TEMAZEPAM. [Concomitant]
     Active Substance: TEMAZEPAM
  9. REYATAZ [Concomitant]
     Active Substance: ATAZANAVIR SULFATE
  10. NYSTATIN. [Concomitant]
     Active Substance: NYSTATIN
  11. BALSALAZIDE DISODIUM. [Concomitant]
     Active Substance: BALSALAZIDE DISODIUM
  12. NORVIR [Concomitant]
     Active Substance: RITONAVIR
  13. SULFAMETHOXAZOLE [Concomitant]
     Active Substance: SULFAMETHOXAZOLE
  14. VENTOLIN [Concomitant]
     Active Substance: ALBUTEROL SULFATE
  15. ASACOL [Concomitant]
     Active Substance: MESALAMINE
  16. OMEPRAZOLE. [Concomitant]
     Active Substance: OMEPRAZOLE
  17. MESALAMINE. [Concomitant]
     Active Substance: MESALAMINE
  18. STRIBILD [Suspect]
     Active Substance: COBICISTAT\ELVITEGRAVIR\EMTRICITABINE\TENOFOVIR DISOPROXIL FUMARATE
     Indication: HIV INFECTION
     Dosage: UNK
     Route: 048
     Dates: start: 2004
  19. STRIBILD [Suspect]
     Active Substance: COBICISTAT\ELVITEGRAVIR\EMTRICITABINE\TENOFOVIR DISOPROXIL FUMARATE
     Dosage: UNK
     Route: 065
     Dates: start: 201307, end: 2017
  20. ATRIPLA [Suspect]
     Active Substance: EFAVIRENZ\EMTRICITABINE\TENOFOVIR DISOPROXIL FUMARATE
     Indication: HIV INFECTION
     Dosage: UNK
     Route: 065
     Dates: start: 2004, end: 200912
  21. APRISO [Concomitant]
     Active Substance: MESALAMINE
  22. LIDOCAINE. [Concomitant]
     Active Substance: LIDOCAINE
  23. AZITHROMYCIN ANHYDROUS. [Concomitant]
     Active Substance: AZITHROMYCIN ANHYDROUS
  24. DELZICOL [Concomitant]
     Active Substance: MESALAMINE
  25. SPORANOX [Concomitant]
     Active Substance: ITRACONAZOLE
  26. VITAMIN B [Concomitant]
     Active Substance: VITAMIN B
  27. CIPROFLOXACIN. [Concomitant]
     Active Substance: CIPROFLOXACIN
  28. KETOROLAC [Concomitant]
     Active Substance: KETOROLAC TROMETHAMINE
  29. VIREAD [Suspect]
     Active Substance: TENOFOVIR DISOPROXIL FUMARATE
     Indication: HIV INFECTION
     Dosage: UNK
     Route: 048
     Dates: start: 2004
  30. VIREAD [Suspect]
     Active Substance: TENOFOVIR DISOPROXIL FUMARATE
     Dosage: UNK
     Route: 065
     Dates: start: 201002, end: 201307
  31. ISENTRESS [Concomitant]
     Active Substance: RALTEGRAVIR POTASSIUM
  32. TIVICAY [Concomitant]
     Active Substance: DOLUTEGRAVIR SODIUM
  33. ABACAVIR. [Concomitant]
     Active Substance: ABACAVIR

REACTIONS (7)
  - Pain [Recovered/Resolved]
  - Renal impairment [Recovered/Resolved]
  - Emotional distress [Recovered/Resolved]
  - Renal failure [Fatal]
  - Bone density decreased [Recovered/Resolved]
  - Anxiety [Recovered/Resolved]
  - Osteoporosis [Unknown]

NARRATIVE: CASE EVENT DATE: 2016
